FAERS Safety Report 8580057-7 (Version None)
Quarter: 2012Q3

REPORT INFORMATION
  Report Type: 
  Country: None (occurrence: None)
  Receive Date: 20120808
  Receipt Date: 20120801
  Transmission Date: 20120928
  Serious: Yes (Disabling, Other)
  Sender: FDA-Public Use
  Company Number: US-AMGEN-USASP2011059445

PATIENT
  Age: 61 Year
  Sex: Female

DRUGS (7)
  1. PROLIA [Suspect]
     Indication: OSTEOPOROSIS POSTMENOPAUSAL
  2. PAXIL [Concomitant]
     Dosage: 1 MG, QD
  3. PROLIA [Suspect]
     Indication: OSTEOPENIA
     Dosage: 60 MG, Q6MO
     Dates: start: 20110907
  4. IBUPROFEN [Concomitant]
     Indication: PAIN
     Dosage: 600 MG, UNK
  5. LEVOTHYROXINE SODIUM [Concomitant]
     Dosage: 1 MUG, QD
  6. MAGNESIUM [Concomitant]
     Dosage: 1 MG, QD
  7. VITAMIN D [Concomitant]
     Dosage: 1 IU, QD

REACTIONS (15)
  - LYMPHOEDEMA [None]
  - DISABILITY [None]
  - ACTIVITIES OF DAILY LIVING IMPAIRED [None]
  - OEDEMA PERIPHERAL [None]
  - ARTHRALGIA [None]
  - JOINT SWELLING [None]
  - RASH MACULO-PAPULAR [None]
  - HOT FLUSH [None]
  - FEELING ABNORMAL [None]
  - ASTHENIA [None]
  - PAIN IN EXTREMITY [None]
  - ANGIOEDEMA [None]
  - SERUM SICKNESS [None]
  - GAIT DISTURBANCE [None]
  - POOR QUALITY SLEEP [None]
